FAERS Safety Report 21766507 (Version 7)
Quarter: 2025Q1

REPORT INFORMATION
  Report Type: Spontaneous
  Country: US (occurrence: US)
  Receive Date: 20221222
  Receipt Date: 20250303
  Transmission Date: 20250409
  Serious: Yes (Hospitalization, Other)
  Sender: PFIZER
  Company Number: US-PFIZER INC-PV202200109189

PATIENT
  Age: 79 Year
  Sex: Female
  Weight: 64.41 kg

DRUGS (3)
  1. IBRANCE [Suspect]
     Active Substance: PALBOCICLIB
     Indication: Breast cancer female
  2. IBRANCE [Suspect]
     Active Substance: PALBOCICLIB
  3. IBRANCE [Suspect]
     Active Substance: PALBOCICLIB
     Route: 048
     Dates: start: 202203

REACTIONS (7)
  - Sepsis [Recovered/Resolved]
  - Pneumonia [Unknown]
  - White blood cell count decreased [Unknown]
  - Infection [Unknown]
  - Vision blurred [Unknown]
  - Throat irritation [Unknown]
  - Feeling abnormal [Unknown]

NARRATIVE: CASE EVENT DATE: 20221017
